FAERS Safety Report 8304748-8 (Version None)
Quarter: 2012Q2

REPORT INFORMATION
  Report Type: 
  Country: None (occurrence: None)
  Receive Date: 20120423
  Receipt Date: 20120420
  Transmission Date: 20120825
  Serious: Yes (Hospitalization)
  Sender: FDA-Public Use
  Company Number: IT-BAYER-2012-039006

PATIENT
  Age: 36 Year
  Sex: Female

DRUGS (1)
  1. ASPIRIN [Suspect]
     Indication: INFLUENZA
     Dosage: 500 MG, ONCE
     Route: 048
     Dates: start: 20120305, end: 20120305

REACTIONS (1)
  - ABDOMINAL PAIN UPPER [None]
